FAERS Safety Report 7402579-4 (Version None)
Quarter: 2011Q2

REPORT INFORMATION
  Report Type: 
  Country: None (occurrence: None)
  Receive Date: 20110408
  Receipt Date: 20110331
  Transmission Date: 20111010
  Serious: Yes (Other)
  Sender: FDA-Public Use
  Company Number: US-PFIZER INC-2006052066

PATIENT
  Sex: Female

DRUGS (4)
  1. BENADRYL [Suspect]
     Dosage: UNK
     Route: 048
     Dates: start: 19990101
  2. AMLODIPINE BESILATE [Concomitant]
     Indication: HYPERTENSION
     Route: 065
  3. ZOLOFT [Suspect]
     Route: 065
  4. WARFARIN SODIUM [Concomitant]
     Indication: ANTICOAGULANT THERAPY
     Route: 065

REACTIONS (1)
  - DYSTONIA [None]
